FAERS Safety Report 21851622 (Version 3)
Quarter: 2023Q1

REPORT INFORMATION
  Report Type: Spontaneous
  Country: US (occurrence: US)
  Receive Date: 20230112
  Receipt Date: 20230309
  Transmission Date: 20230418
  Serious: Yes (Other)
  Sender: FDA-Public Use
  Company Number: US-002147023-NVSC2023US005080

PATIENT
  Sex: Female

DRUGS (5)
  1. DUREZOL [Suspect]
     Active Substance: DIFLUPREDNATE
     Indication: Iritis
     Dosage: 1 DRP, QD (IN EACH EYE)
     Route: 047
  2. DUREZOL [Suspect]
     Active Substance: DIFLUPREDNATE
     Dosage: 1 DRP, BID (IN BOTH EYES DAILY)
     Route: 047
  3. MINOCYCLINE [Suspect]
     Active Substance: MINOCYCLINE HYDROCHLORIDE
     Indication: Product used for unknown indication
     Dosage: UNK (FOR 4 DAYS)
     Route: 065
  4. MOXIFLOXACIN HYDROCHLORIDE [Suspect]
     Active Substance: MOXIFLOXACIN HYDROCHLORIDE
     Indication: Tooth extraction
     Dosage: UNK
     Route: 065
     Dates: start: 20131115
  5. PREDNISOLONE ACETATE [Concomitant]
     Active Substance: PREDNISOLONE ACETATE
     Indication: Product used for unknown indication
     Dosage: 4 DRP
     Route: 065

REACTIONS (5)
  - Blindness [Unknown]
  - Cataract [Unknown]
  - Drug hypersensitivity [Unknown]
  - Iritis [Unknown]
  - Visual impairment [Unknown]

NARRATIVE: CASE EVENT DATE: 20130101
